FAERS Safety Report 26046882 (Version 2)
Quarter: 2025Q4

REPORT INFORMATION
  Report Type: Spontaneous
  Country: US (occurrence: US)
  Receive Date: 20251114
  Receipt Date: 20251202
  Transmission Date: 20260118
  Serious: No
  Sender: SANOFI AVENTIS
  Company Number: US-SA-2025SA339170

PATIENT
  Age: 36 Year
  Sex: Female

DRUGS (2)
  1. DUPIXENT [Suspect]
     Active Substance: DUPILUMAB
     Indication: Idiopathic urticaria
     Dosage: 600 MG, 1X
     Route: 058
     Dates: start: 20251018, end: 20251018
  2. DUPIXENT [Suspect]
     Active Substance: DUPILUMAB
     Indication: Urticaria cholinergic
     Dosage: 300 MG, QOW
     Route: 058

REACTIONS (2)
  - Therapeutic response shortened [Unknown]
  - Product use in unapproved indication [Unknown]

NARRATIVE: CASE EVENT DATE: 20250101
